FAERS Safety Report 14700030 (Version 2)
Quarter: 2018Q2

REPORT INFORMATION
  Report Type: Spontaneous
  Country: DE (occurrence: DE)
  Receive Date: 20180330
  Receipt Date: 20180406
  Transmission Date: 20180711
  Serious: Yes (Death, Hospitalization, Other)
  Sender: FDA-Public Use
  Company Number: DE-ASTELLAS-2018US015824

PATIENT
  Age: 69 Year
  Sex: Male

DRUGS (4)
  1. RIBAVIRIN. [Interacting]
     Active Substance: RIBAVIRIN
     Indication: HEPATITIS C
     Route: 065
     Dates: start: 201510
  2. SOFOSBUVIR [Interacting]
     Active Substance: SOFOSBUVIR
     Indication: HEPATITIS C
     Route: 065
     Dates: start: 201510
  3. TACROLIMUS. [Suspect]
     Active Substance: TACROLIMUS
     Indication: LIVER TRANSPLANT
     Dosage: 0.5 MG, ONCE DAILY
     Route: 065
  4. PREDNISONE. [Suspect]
     Active Substance: PREDNISONE
     Indication: LIVER TRANSPLANT
     Route: 065

REACTIONS (16)
  - Anaemia [Unknown]
  - Viral infection [Unknown]
  - Infection [Unknown]
  - Pneumonia [Unknown]
  - Hepatic fibrosis [Unknown]
  - Oedema [Unknown]
  - Decreased appetite [Unknown]
  - Post procedural bile leak [Unknown]
  - Renal impairment [Unknown]
  - Cholestasis [Unknown]
  - Cholangitis [Unknown]
  - Hepatocellular carcinoma [Fatal]
  - Ascites [Unknown]
  - Lung infection [Unknown]
  - Asthenia [Unknown]
  - Hepatitis C [Unknown]

NARRATIVE: CASE EVENT DATE: 201510
